FAERS Safety Report 23118692 (Version 3)
Quarter: 2024Q1

REPORT INFORMATION
  Report Type: Report from Study
  Country: US (occurrence: US)
  Receive Date: 20231028
  Receipt Date: 20240131
  Transmission Date: 20240409
  Serious: Yes (Other)
  Sender: FDA-Public Use
  Company Number: US-JNJFOC-20231050331

PATIENT
  Sex: Female

DRUGS (1)
  1. SPRAVATO [Suspect]
     Active Substance: ESKETAMINE
     Indication: Depression

REACTIONS (5)
  - Hallucination [Unknown]
  - Hypertension [Unknown]
  - Dysgeusia [Unknown]
  - Bladder disorder [Recovered/Resolved]
  - Vomiting [Unknown]
